FAERS Safety Report 24034749 (Version 2)
Quarter: 2024Q3

REPORT INFORMATION
  Report Type: Report from Study
  Country: US (occurrence: US)
  Receive Date: 20240701
  Receipt Date: 20240710
  Transmission Date: 20241017
  Serious: No
  Sender: ROCHE
  Company Number: US-ROCHE-3565232

PATIENT
  Age: 2 Year
  Sex: Male
  Weight: 7.79 kg

DRUGS (2)
  1. EVRYSDI [Suspect]
     Active Substance: RISDIPLAM
     Indication: Spinal muscular atrophy
     Dosage: 2.1 ML
     Route: 050
     Dates: start: 20220923
  2. EVRYSDI [Suspect]
     Active Substance: RISDIPLAM
     Route: 065
     Dates: start: 20240426

REACTIONS (2)
  - Illness [Not Recovered/Not Resolved]
  - Upper respiratory tract infection [Unknown]
